FAERS Safety Report 9192855 (Version 1)
Quarter: 2013Q1

REPORT INFORMATION
  Report Type: Spontaneous
  Country: US (occurrence: None)
  Receive Date: 20130325
  Receipt Date: 20130325
  Transmission Date: 20140127
  Serious: Yes (Hospitalization)
  Sender: FDA-Public Use
  Company Number: None

PATIENT
  Age: 63 Year
  Sex: Male
  Weight: 99.4 kg

DRUGS (1)
  1. ENOXAPARIN [Suspect]
     Indication: ATRIAL FIBRILLATION
     Dates: start: 20130212, end: 20130214

REACTIONS (7)
  - Thrombocytopenia [None]
  - Heparin-induced thrombocytopenia test positive [None]
  - Mitral valve incompetence [None]
  - Pulmonary oedema [None]
  - Endocarditis staphylococcal [None]
  - Respiratory failure [None]
  - Hypoxia [None]
